FAERS Safety Report 7873345-0 (Version None)
Quarter: 2011Q4

REPORT INFORMATION
  Report Type: 
  Country: None (occurrence: None)
  Receive Date: 20111030
  Receipt Date: 20110503
  Transmission Date: 20120403
  Serious: No
  Sender: FDA-Public Use
  Company Number: US-AMGEN-USASP2011022905

PATIENT
  Age: 52 Year
  Sex: Female

DRUGS (1)
  1. ENBREL [Suspect]
     Indication: PSORIATIC ARTHROPATHY
     Dosage: 50 MG, QWK
     Dates: start: 20110423

REACTIONS (8)
  - LACRIMATION INCREASED [None]
  - DYSPNOEA [None]
  - PYREXIA [None]
  - MALAISE [None]
  - COUGH [None]
  - RHINORRHOEA [None]
  - EYE PRURITUS [None]
  - PAIN [None]
